FAERS Safety Report 6869114-0 (Version None)
Quarter: 2010Q3

REPORT INFORMATION
  Report Type: 
  Country: None (occurrence: None)
  Receive Date: 20100722
  Receipt Date: 20080708
  Transmission Date: 20110219
  Serious: No
  Sender: FDA-Public Use
  Company Number: US-PFIZER INC-2008057441

PATIENT
  Sex: Female

DRUGS (2)
  1. CHANTIX [Suspect]
     Indication: EX-TOBACCO USER
     Dates: start: 20080301
  2. PAROXETINE HCL [Concomitant]

REACTIONS (3)
  - DEPRESSION [None]
  - NAUSEA [None]
  - PERSONALITY CHANGE [None]
